FAERS Safety Report 17075582 (Version 1)
Quarter: 2019Q4

REPORT INFORMATION
  Report Type: Spontaneous
  Country: US (occurrence: US)
  Receive Date: 20191125
  Receipt Date: 20191125
  Transmission Date: 20200122
  Serious: Yes (Other)
  Sender: FDA-Public Use
  Company Number: None

PATIENT
  Age: 50 Year
  Sex: Male
  Weight: 75.6 kg

DRUGS (6)
  1. FENTANYL. [Concomitant]
     Active Substance: FENTANYL
  2. OMEPRAZOLE. [Concomitant]
     Active Substance: OMEPRAZOLE
  3. INLYTA [Suspect]
     Active Substance: AXITINIB
     Indication: RENAL CANCER
     Route: 048
     Dates: start: 20190918, end: 20191125
  4. METHADONE HCL [Concomitant]
     Active Substance: METHADONE HYDROCHLORIDE
  5. DILAUDID [Concomitant]
     Active Substance: HYDROMORPHONE HYDROCHLORIDE
  6. INLYTA [Suspect]
     Active Substance: AXITINIB
     Indication: RENAL CANCER
     Route: 048
     Dates: start: 20190918, end: 20191125

REACTIONS (1)
  - Hospice care [None]

NARRATIVE: CASE EVENT DATE: 20191125
